FAERS Safety Report 21003986 (Version 4)
Quarter: 2022Q3

REPORT INFORMATION
  Report Type: Other
  Country: DE (occurrence: DE)
  Receive Date: 20220624
  Receipt Date: 20220803
  Transmission Date: 20221027
  Serious: No
  Sender: FDA-Public Use
  Company Number: DE-ROCHE-3117796

PATIENT
  Age: 39 Year
  Sex: Male
  Weight: 100 kg

DRUGS (4)
  1. OCRELIZUMAB [Suspect]
     Active Substance: OCRELIZUMAB
     Indication: Relapsing multiple sclerosis
     Dosage: FIRST DOSE
     Route: 042
     Dates: start: 20190204, end: 20190218
  2. OCRELIZUMAB [Suspect]
     Active Substance: OCRELIZUMAB
     Route: 042
     Dates: start: 20190819, end: 20220118
  3. IBUPROFEN [Concomitant]
     Active Substance: IBUPROFEN
     Indication: Headache
     Route: 048
     Dates: start: 20190506, end: 20190510
  4. VIGANTOL [Concomitant]
     Dosage: 2000
     Route: 048
     Dates: start: 201612, end: 202006

REACTIONS (1)
  - COVID-19 [Recovered/Resolved]

NARRATIVE: CASE EVENT DATE: 20220518
